FAERS Safety Report 15037161 (Version 12)
Quarter: 2019Q2

REPORT INFORMATION
  Report Type: Report from Study
  Country: CN (occurrence: CN)
  Receive Date: 20180620
  Receipt Date: 20190617
  Transmission Date: 20190711
  Serious: Yes (Hospitalization)
  Sender: FDA-Public Use
  Company Number: CN-ROCHE-2115397

PATIENT
  Age: 61 Year
  Sex: Male
  Weight: 64.5 kg

DRUGS (54)
  1. RECOMBINANT HUMAN THROMBOPOIETIN [Concomitant]
     Active Substance: THROMBOPOIETIN
     Route: 045
     Dates: start: 20180621, end: 20180622
  2. TRAMADOL. [Concomitant]
     Active Substance: TRAMADOL
     Indication: PAIN
     Route: 030
     Dates: start: 20180619, end: 20180619
  3. INTRALIPID [GLYCINE MAX SEED OIL] [Concomitant]
     Route: 042
     Dates: start: 20180523, end: 20180528
  4. LACTULOSE. [Concomitant]
     Active Substance: LACTULOSE
     Indication: CONSTIPATION
     Route: 048
     Dates: start: 20180524, end: 20180524
  5. RED BLOOD CELLS [Concomitant]
     Active Substance: HUMAN RED BLOOD CELL
     Route: 042
     Dates: start: 20180427, end: 20180427
  6. RED BLOOD CELLS [Concomitant]
     Active Substance: HUMAN RED BLOOD CELL
     Route: 042
     Dates: start: 20180425, end: 20180426
  7. FAT EMULSION NOS [Concomitant]
     Active Substance: EGG PHOSPHOLIPIDS\SAFFLOWER OIL\SOYBEAN OIL
     Route: 050
     Dates: start: 20180622, end: 20180625
  8. RECOMBINANT HUMAN THROMBOPOIETIN [Concomitant]
     Active Substance: THROMBOPOIETIN
     Indication: PLATELET COUNT INCREASED
     Route: 048
     Dates: start: 20180623, end: 20180623
  9. RECOMBINANT HUMAN THROMBOPOIETIN [Concomitant]
     Active Substance: THROMBOPOIETIN
     Route: 045
     Dates: start: 20180716, end: 20180722
  10. TRAMADOL. [Concomitant]
     Active Substance: TRAMADOL
     Route: 048
     Dates: start: 20180624, end: 20180624
  11. INDOMETACIN [Concomitant]
     Active Substance: INDOMETHACIN
     Route: 054
     Dates: start: 20180424, end: 20180426
  12. SODIUM CHLORIDE. [Concomitant]
     Active Substance: SODIUM CHLORIDE
     Indication: INFLAMMATION
     Route: 042
     Dates: start: 20180426, end: 20180428
  13. ONDANSETRON HYDROCHLORIDE. [Concomitant]
     Active Substance: ONDANSETRON HYDROCHLORIDE
     Indication: PROPHYLAXIS OF NAUSEA AND VOMITING
     Route: 042
     Dates: start: 20180706, end: 20180706
  14. MEGESTROL ACETATE. [Concomitant]
     Active Substance: MEGESTROL ACETATE
     Route: 048
     Dates: start: 20180307
  15. CEFDINIR. [Concomitant]
     Active Substance: CEFDINIR
     Route: 048
     Dates: start: 20180307
  16. RED BLOOD CELLS-LEUKOCYTES REDUCED [Concomitant]
     Active Substance: HUMAN RED BLOOD CELL
     Indication: RED BLOOD CELL COUNT INCREASED
     Route: 065
     Dates: start: 20180620, end: 20180620
  17. PROMETHAZINE HYDROCHLORIDE. [Concomitant]
     Active Substance: PROMETHAZINE HYDROCHLORIDE
     Route: 030
     Dates: start: 20180523, end: 20180523
  18. CEFOXITIN SODIUM [Concomitant]
     Active Substance: CEFOXITIN SODIUM
     Indication: INFECTION
     Route: 042
     Dates: start: 20180426, end: 20180428
  19. ATEZOLIZUMAB. [Suspect]
     Active Substance: ATEZOLIZUMAB
     Indication: TRANSITIONAL CELL CARCINOMA
     Dosage: ON DAY 1 OF EACH 21-DAY CYCLE?MOST RECENT DOSE PRIOR TO SAES: 28/MAR/2018 AND 09/MAY/2018
     Route: 042
     Dates: start: 20180211
  20. RECOMBINANT HUMAN THROMBOPOIETIN [Concomitant]
     Active Substance: THROMBOPOIETIN
     Route: 050
     Dates: start: 20180623, end: 20180627
  21. ONDANSETRON HYDROCHLORIDE. [Concomitant]
     Active Substance: ONDANSETRON HYDROCHLORIDE
     Route: 042
     Dates: start: 20180328, end: 20180328
  22. GEMCITABINE [Suspect]
     Active Substance: GEMCITABINE\GEMCITABINE HYDROCHLORIDE
     Indication: TRANSITIONAL CELL CARCINOMA
     Dosage: ON DAY 1 AND DAY 8 OF EACH 21-DAY CYCLE?MOST RECENT DOSE (1200 MG/M2) PRIOR TO SAE ON 09/MAY/2018,
     Route: 042
     Dates: start: 20180211
  23. PIPERACILLIN SODIUM [Concomitant]
     Active Substance: PIPERACILLIN SODIUM
     Route: 050
     Dates: start: 20180306
  24. CEFOXITIN SODIUM [Concomitant]
     Active Substance: CEFOXITIN SODIUM
     Route: 042
     Dates: start: 20180524, end: 20180528
  25. CARBAZOCHROME SODIUM SULFONATE [Concomitant]
     Active Substance: CARBAZOCHROME SODIUM SULFONATE
     Indication: HAEMOSTASIS
     Route: 050
     Dates: start: 20180620, end: 20180627
  26. RECOMBINANT HUMAN THROMBOPOIETIN [Concomitant]
     Active Substance: THROMBOPOIETIN
     Dosage: 1500 IU  (IH (INHALED) EVERYDAY)
     Route: 050
     Dates: start: 20180620, end: 20180620
  27. MAGNESIUM ISOGLYCYRRHIZINATE [Concomitant]
     Active Substance: MAGNESIUM ISOGLYCYRRHIZINATE
     Route: 042
     Dates: start: 20180419, end: 20180420
  28. FOLIC ACID. [Concomitant]
     Active Substance: FOLIC ACID
     Indication: ANAEMIA
     Route: 048
     Dates: start: 20180425, end: 20180425
  29. PANTOPRAZOLE SODIUM. [Concomitant]
     Active Substance: PANTOPRAZOLE SODIUM
     Route: 042
     Dates: start: 20180420, end: 20180420
  30. CEFOXITIN SODIUM [Concomitant]
     Active Substance: CEFOXITIN SODIUM
     Indication: INFECTION
     Route: 050
     Dates: start: 20180620, end: 20180627
  31. RECOMBINANT HUMAN THROMBOPOIETIN [Concomitant]
     Active Substance: THROMBOPOIETIN
     Route: 045
     Dates: start: 20180625, end: 20180627
  32. RECOMBINANT HUMAN THROMBOPOIETIN [Concomitant]
     Active Substance: THROMBOPOIETIN
     Route: 045
     Dates: start: 20180523, end: 20180528
  33. RECOMBINANT HUMAN THROMBOPOIETIN [Concomitant]
     Active Substance: THROMBOPOIETIN
     Route: 042
     Dates: start: 20180419, end: 20180420
  34. RECOMBINANT HUMAN THROMBOPOIETIN [Concomitant]
     Active Substance: THROMBOPOIETIN
     Route: 042
     Dates: start: 20180425, end: 20180425
  35. CEFMETAZOLE SODIUM [Concomitant]
     Active Substance: CEFMETAZOLE SODIUM
     Indication: INFLAMMATION
     Route: 042
     Dates: start: 20180425, end: 20180426
  36. ONDANSETRON HYDROCHLORIDE. [Concomitant]
     Active Substance: ONDANSETRON HYDROCHLORIDE
     Route: 042
     Dates: start: 20180712, end: 20180712
  37. TAZOBACTAM SODIUM [Concomitant]
     Active Substance: TAZOBACTAM SODIUM
     Route: 050
     Dates: start: 20180306
  38. CEFOXITIN SODIUM [Concomitant]
     Active Substance: CEFOXITIN SODIUM
     Route: 042
     Dates: start: 20180426, end: 20180428
  39. CARBAZOCHROME SODIUM SULFONATE [Concomitant]
     Active Substance: CARBAZOCHROME SODIUM SULFONATE
     Route: 042
     Dates: start: 20180523, end: 20180528
  40. RECOMBINANT HUMAN THROMBOPOIETIN [Concomitant]
     Active Substance: THROMBOPOIETIN
     Route: 050
     Dates: start: 20180714, end: 20180714
  41. RECOMBINANT HUMAN THROMBOPOIETIN [Concomitant]
     Active Substance: THROMBOPOIETIN
     Route: 042
     Dates: start: 20180427, end: 20180428
  42. RECOMBINANT HUMAN THROMBOPOIETIN [Concomitant]
     Active Substance: THROMBOPOIETIN
     Dosage: ONE VIAL
     Route: 058
  43. TRAMADOL. [Concomitant]
     Active Substance: TRAMADOL
     Route: 048
     Dates: start: 20180621, end: 20180621
  44. RED BLOOD CELLS-LEUKOCYTES REDUCED [Concomitant]
     Active Substance: HUMAN RED BLOOD CELL
     Indication: WHITE BLOOD CELL COUNT INCREASED
  45. ONDANSETRON HYDROCHLORIDE. [Concomitant]
     Active Substance: ONDANSETRON HYDROCHLORIDE
     Route: 042
     Dates: start: 20180403, end: 20180403
  46. CARBOPLATIN. [Suspect]
     Active Substance: CARBOPLATIN
     Indication: TRANSITIONAL CELL CARCINOMA
     Dosage: MOST RECENT DOSE (1600 MG) PRIOR TO SAES: 28/MAR/2018 AND 09/MAY/2018?AREA UNDER THE CONCENTRATION-T
     Route: 042
     Dates: start: 20180211
  47. LEVOFLOXACIN. [Concomitant]
     Active Substance: LEVOFLOXACIN
     Route: 048
     Dates: start: 20180307
  48. PANTOPRAZOLE SODIUM. [Concomitant]
     Active Substance: PANTOPRAZOLE SODIUM
     Route: 050
     Dates: start: 20180619, end: 20180627
  49. RECOMBINANT HUMAN THROMBOPOIETIN [Concomitant]
     Active Substance: THROMBOPOIETIN
     Route: 050
     Dates: start: 20180721, end: 20180721
  50. RECOMBINANT HUMAN THROMBOPOIETIN [Concomitant]
     Active Substance: THROMBOPOIETIN
     Route: 050
     Dates: start: 20180725, end: 20180725
  51. RECOMBINANT HUMAN THROMBOPOIETIN [Concomitant]
     Active Substance: THROMBOPOIETIN
     Route: 042
     Dates: start: 20180524, end: 20180528
  52. OMEPRAZOLE. [Concomitant]
     Active Substance: OMEPRAZOLE
     Route: 048
     Dates: start: 20180626, end: 20180626
  53. INDOMETACIN [Concomitant]
     Active Substance: INDOMETHACIN
     Route: 054
     Dates: start: 20180523, end: 20180523
  54. ETIMICIN SULFATE [Concomitant]
     Active Substance: ETIMICIN SULFATE
     Indication: INFLAMMATION
     Route: 042
     Dates: start: 20180426, end: 20180428

REACTIONS (4)
  - Urinary tract infection [Not Recovered/Not Resolved]
  - Bone marrow failure [Recovered/Resolved]
  - Bone marrow failure [Recovered/Resolved]
  - Lung infection [Recovered/Resolved]

NARRATIVE: CASE EVENT DATE: 20180418
